FAERS Safety Report 24325411 (Version 1)
Quarter: 2024Q3

REPORT INFORMATION
  Report Type: Spontaneous
  Country: PT (occurrence: PT)
  Receive Date: 20240917
  Receipt Date: 20240917
  Transmission Date: 20241017
  Serious: Yes (Death, Other)
  Sender: CHATTEM
  Company Number: PT-OPELLA-2024OHG031910

PATIENT

DRUGS (4)
  1. XYZAL ALLERGY 24HR [Suspect]
     Active Substance: LEVOCETIRIZINE DIHYDROCHLORIDE
     Indication: Product used for unknown indication
     Route: 065
  2. TAMSULOSIN HYDROCHLORIDE [Suspect]
     Active Substance: TAMSULOSIN HYDROCHLORIDE
     Indication: Product used for unknown indication
     Route: 065
  3. SODIUM PICOSULFATE [Suspect]
     Active Substance: SODIUM PICOSULFATE
     Indication: Product used for unknown indication
     Route: 065
  4. CALCIUM CARBONATE [Suspect]
     Active Substance: CALCIUM CARBONATE
     Indication: Product used for unknown indication
     Route: 065

REACTIONS (23)
  - Blindness [Fatal]
  - Insomnia [Fatal]
  - Abdominal pain [Fatal]
  - Head discomfort [Fatal]
  - Diarrhoea [Fatal]
  - Fall [Fatal]
  - Amaurosis fugax [Fatal]
  - Eye pain [Fatal]
  - Chills [Fatal]
  - Cardio-respiratory arrest [Fatal]
  - Sepsis [Fatal]
  - Dizziness [Fatal]
  - Fatigue [Fatal]
  - Pruritus [Fatal]
  - Tachycardia [Fatal]
  - Ascites [Fatal]
  - Coma [Fatal]
  - Nausea [Fatal]
  - Ocular discomfort [Fatal]
  - Arthralgia [Fatal]
  - Altered state of consciousness [Fatal]
  - Haemorrhagic stroke [Fatal]
  - Haematemesis [Fatal]
